FAERS Safety Report 4558857-X (Version None)
Quarter: 2005Q1

REPORT INFORMATION
  Report Type: 
  Country: None (occurrence: None)
  Receive Date: 20050121
  Receipt Date: 20041018
  Transmission Date: 20050727
  Serious: Yes (Life-Threatening, Hospitalization, Disabling, Other)
  Sender: FDA-Public Use
  Company Number: US-MERCK-0410USA02667

PATIENT
  Age: 17 Year
  Sex: Female

DRUGS (3)
  1. FOSAMAX [Suspect]
     Indication: CALCINOSIS
     Route: 048
     Dates: end: 20040101
  2. IMURAN [Concomitant]
     Route: 065
  3. CORTICOSTEROIDS (UNSPECIFIED) [Concomitant]
     Route: 065

REACTIONS (9)
  - ANEURYSM [None]
  - ARTERIAL INJURY [None]
  - BACTERIAL INFECTION [None]
  - HAEMORRHAGE [None]
  - MUSCLE NECROSIS [None]
  - NECROTISING OESOPHAGITIS [None]
  - PRESCRIBED OVERDOSE [None]
  - RENAL DISORDER [None]
  - SEPTIC SHOCK [None]
